FAERS Safety Report 21584594 (Version 1)
Quarter: 2022Q4

REPORT INFORMATION
  Report Type: Spontaneous
  Country: US (occurrence: US)
  Receive Date: 20221111
  Receipt Date: 20221111
  Transmission Date: 20230113
  Serious: Yes (Death, Hospitalization, Other)
  Sender: FDA-Public Use
  Company Number: US-FreseniusKabi-FK202215238

PATIENT
  Age: 68 Year
  Sex: Male

DRUGS (6)
  1. NOREPINEPHRINE [Suspect]
     Active Substance: NOREPINEPHRINE
     Indication: Hypotension
     Dosage: MEAN DOSE OF 0.06 MCG/KG/MIN?ON POD 16
  2. NOREPINEPHRINE [Suspect]
     Active Substance: NOREPINEPHRINE
     Dosage: DOSES RANGED FROM 0.04 TO 0.09 MCG/KG/MIN?ON POSTOPERATIVE DAY (POD) 12
  3. MIDODRINE [Suspect]
     Active Substance: MIDODRINE
     Indication: Hypotension
     Dosage: ON POSTOPERATIVE DAY (POD) 12?INCREASED TO 20 MG THREE TIMES DAILY
  4. VASOPRESSIN [Suspect]
     Active Substance: VASOPRESSIN
     Indication: Hypotension
     Dosage: 0.04 UNITS/MIN
  5. DIETARY SUPPLEMENT [Suspect]
     Active Substance: DIETARY SUPPLEMENT
     Indication: Nutritional supplementation
     Dosage: ON POD 16, EN WAS INCREASED TO 30 ML/H
  6. AMINO ACIDS\DEXTROSE\ELECTROLYTES NOS [Concomitant]
     Active Substance: AMINO ACIDS\DEXTROSE\ELECTROLYTES NOS
     Indication: Nutritional supplementation

REACTIONS (1)
  - Intestinal ischaemia [Fatal]
